FAERS Safety Report 9882367 (Version 1)
Quarter: 2014Q1

REPORT INFORMATION
  Report Type: Spontaneous
  Country: GB (occurrence: GB)
  Receive Date: 20140207
  Receipt Date: 20140207
  Transmission Date: 20141002
  Serious: Yes (Other)
  Sender: FDA-Public Use
  Company Number: GB-GLAXOSMITHKLINE-B0964940A

PATIENT
  Age: 34 Year
  Sex: Male
  Weight: 87 kg

DRUGS (1)
  1. FLOLAN [Suspect]
     Indication: RAYNAUD^S PHENOMENON
     Route: 042
     Dates: start: 20140121, end: 20140122

REACTIONS (6)
  - Agitation [Recovered/Resolved]
  - Tremor [Recovered/Resolved]
  - Vasoconstriction [Recovered/Resolved]
  - Raynaud^s phenomenon [Unknown]
  - Peripheral coldness [Recovered/Resolved]
  - Cyanosis [Recovered/Resolved]
